FAERS Safety Report 9008833 (Version 1)
Quarter: 2013Q1

REPORT INFORMATION
  Report Type: Spontaneous
  Country: US (occurrence: US)
  Receive Date: 20130111
  Receipt Date: 20130111
  Transmission Date: 20140127
  Serious: Yes (Other)
  Sender: FDA-Public Use
  Company Number: CHPA2013US000705

PATIENT
  Age: 68 Year
  Sex: Female

DRUGS (5)
  1. VOLTAREN GEL [Suspect]
     Indication: PAIN IN EXTREMITY
     Dosage: UNK, 3-4 TIMES A DAY
     Route: 061
  2. DIURETICS [Concomitant]
     Dosage: UNK
  3. LIDODERM [Concomitant]
  4. TRAMADOL [Concomitant]
     Indication: PAIN
     Dosage: 0.5 DF, PRN
  5. ANALGESICS [Concomitant]
     Indication: PAIN
     Dosage: UNK
     Dates: start: 2008

REACTIONS (5)
  - Pain in extremity [Recovered/Resolved]
  - Off label use [Unknown]
  - Therapeutic response unexpected [Unknown]
  - Wrong technique in drug usage process [Unknown]
  - Drug administered at inappropriate site [Unknown]
